FAERS Safety Report 19685349 (Version 1)
Quarter: 2021Q3

REPORT INFORMATION
  Report Type: Spontaneous
  Country: CL (occurrence: CL)
  Receive Date: 20210811
  Receipt Date: 20210811
  Transmission Date: 20211014
  Serious: Yes (Other)
  Sender: FDA-Public Use
  Company Number: CL-PFIZER INC-202100963087

PATIENT
  Age: 39 Year
  Sex: Female

DRUGS (2)
  1. CHAMPIX [Suspect]
     Active Substance: VARENICLINE TARTRATE
     Indication: TOBACCO ABUSE
     Dosage: 0.5 MG, INITIAL DOSE
     Dates: start: 20210628
  2. CHAMPIX [Suspect]
     Active Substance: VARENICLINE TARTRATE
     Dosage: 1 MG, MAINTENANCE DOSE
     Dates: end: 20210722

REACTIONS (7)
  - Toxicity to various agents [Unknown]
  - Abdominal discomfort [Unknown]
  - Liver injury [Unknown]
  - Fatigue [Unknown]
  - Abdominal pain upper [Unknown]
  - Gastritis [Unknown]
  - Emotional distress [Unknown]

NARRATIVE: CASE EVENT DATE: 2021
